FAERS Safety Report 6388382-5 (Version None)
Quarter: 2009Q4

REPORT INFORMATION
  Report Type: 
  Country: None (occurrence: None)
  Receive Date: 20091005
  Receipt Date: 20090928
  Transmission Date: 20100525
  Serious: Yes (Other)
  Sender: FDA-Public Use
  Company Number: US-ELI_LILLY_AND_COMPANY-US200909006499

PATIENT
  Sex: Female

DRUGS (5)
  1. HUMALOG MIX 75/25 [Suspect]
     Dosage: UNK, UNK
     Dates: start: 20070101
  2. HUMULIN N [Suspect]
     Dates: start: 20070101
  3. HUMALOG [Suspect]
     Dates: start: 20070101
  4. GLUCOPHAGE [Concomitant]
  5. TENLOL [Concomitant]

REACTIONS (5)
  - BLOOD GLUCOSE INCREASED [None]
  - DYSPNOEA [None]
  - EYE HAEMORRHAGE [None]
  - MEDICATION ERROR [None]
  - VISION BLURRED [None]
